FAERS Safety Report 5744850-8 (Version None)
Quarter: 2008Q2

REPORT INFORMATION
  Report Type: 
  Country: None (occurrence: None)
  Receive Date: 20080516
  Receipt Date: 20080502
  Transmission Date: 20081010
  Serious: Yes (Hospitalization)
  Sender: FDA-Public Use
  Company Number: 2008AL003263

PATIENT
  Age: 78 Year
  Sex: Male
  Weight: 74.3899 kg

DRUGS (4)
  1. DIGOXIN [Suspect]
     Indication: CARDIAC DISORDER
     Dosage: 0.125MG DAILY PO
     Route: 048
  2. SPIRIVA [Concomitant]
  3. ALBUTEROL [Concomitant]
  4. LANOXIN [Concomitant]

REACTIONS (6)
  - ANOREXIA [None]
  - ASTHENIA [None]
  - DIARRHOEA [None]
  - HYPERSOMNIA [None]
  - NAUSEA [None]
  - WEIGHT DECREASED [None]
